FAERS Safety Report 9732862 (Version 1)
Quarter: 2013Q4

REPORT INFORMATION
  Report Type: Spontaneous
  Country: US (occurrence: US)
  Receive Date: 20131204
  Receipt Date: 20131204
  Transmission Date: 20140711
  Serious: No
  Sender: FDA-Public Use
  Company Number: US-GILEAD-2009-0021416

PATIENT
  Sex: Female
  Weight: 57.15 kg

DRUGS (7)
  1. LETAIRIS [Suspect]
     Indication: PULMONARY ARTERIAL HYPERTENSION
     Route: 048
     Dates: start: 20090306
  2. NORVASC [Concomitant]
  3. LASIX [Concomitant]
  4. VALCYTE [Concomitant]
  5. PREDNISONE [Concomitant]
  6. PRILOSEC [Concomitant]
  7. NEORAL [Concomitant]

REACTIONS (2)
  - Adverse drug reaction [Unknown]
  - Local swelling [Unknown]
